FAERS Safety Report 21637653 (Version 1)
Quarter: 2022Q4

REPORT INFORMATION
  Report Type: Spontaneous
  Country: TW (occurrence: TW)
  Receive Date: 20221124
  Receipt Date: 20221124
  Transmission Date: 20230113
  Serious: Yes (Other)
  Sender: FDA-Public Use
  Company Number: TW-SUN PHARMACEUTICAL INDUSTRIES LTD-2022R1-365303

PATIENT
  Age: 52 Year
  Sex: Female

DRUGS (2)
  1. CARBOPLATIN [Suspect]
     Active Substance: CARBOPLATIN
     Indication: Clear cell carcinoma of cervix
     Dosage: UNK/TARGET AUC, 5 MG/ML/MIN
     Route: 065
  2. PACLITAXEL [Suspect]
     Active Substance: PACLITAXEL
     Indication: Clear cell carcinoma of cervix
     Dosage: 175 MILLIGRAM/SQ. METER
     Route: 065

REACTIONS (1)
  - Neoplasm recurrence [Unknown]
